FAERS Safety Report 23602106 (Version 3)
Quarter: 2024Q1

REPORT INFORMATION
  Report Type: Report from Study
  Country: US (occurrence: US)
  Receive Date: 20240306
  Receipt Date: 20240323
  Transmission Date: 20240410
  Serious: No
  Sender: FDA-Public Use
  Company Number: US-SA-2024SA029742

PATIENT
  Sex: Female
  Weight: 108.86 kg

DRUGS (7)
  1. DUPIXENT [Suspect]
     Active Substance: DUPILUMAB
     Indication: Dermatitis atopic
     Dosage: 600 MG, 1X
     Route: 058
     Dates: start: 2023
  2. DUPIXENT [Suspect]
     Active Substance: DUPILUMAB
     Indication: Asthma
     Dosage: 300 MG, QOW
     Route: 058
     Dates: start: 20230526
  3. DUPIXENT [Suspect]
     Active Substance: DUPILUMAB
     Indication: Dermatitis
  4. ALEVE [Interacting]
     Active Substance: NAPROXEN SODIUM
     Dosage: UNK
  5. TYLENOL [Concomitant]
     Active Substance: ACETAMINOPHEN
     Dosage: UNK
  6. MOUNJARO [Concomitant]
     Active Substance: TIRZEPATIDE
     Dosage: MOUNJARO 2.5 MG/0.5 PEN INJCTR,
  7. CELECOXIB [Concomitant]
     Active Substance: CELECOXIB

REACTIONS (5)
  - Cough [Unknown]
  - Accidental exposure to product [Unknown]
  - Product preparation error [Unknown]
  - Exposure via skin contact [Unknown]
  - Product use in unapproved indication [Unknown]
